FAERS Safety Report 18924281 (Version 1)
Quarter: 2021Q1

REPORT INFORMATION
  Report Type: Spontaneous
  Country: CH (occurrence: CH)
  Receive Date: 20210222
  Receipt Date: 20210222
  Transmission Date: 20210420
  Serious: Yes (Life-Threatening, Hospitalization, Other)
  Sender: FDA-Public Use
  Company Number: NVSC2021CH039008

PATIENT
  Age: 28 Year
  Sex: Female
  Weight: 64 kg

DRUGS (5)
  1. CERAZETTE [Concomitant]
     Indication: PRODUCT USED FOR UNKNOWN INDICATION
     Dosage: 0.075 MG, QD (1?0?0?0)
     Route: 048
     Dates: end: 20201120
  2. COSENTYX [Suspect]
     Active Substance: SECUKINUMAB
     Indication: ANKYLOSING SPONDYLITIS
     Dosage: 150 MG, QMO
     Route: 058
     Dates: start: 20200825, end: 20201026
  3. PANTOPRAZOL HELVEPHARM [Concomitant]
     Indication: PRODUCT USED FOR UNKNOWN INDICATION
     Dosage: 20 MG, QD (1?0?0?0)
     Route: 048
  4. ESCITALOPRAM [Concomitant]
     Active Substance: ESCITALOPRAM OXALATE
     Indication: PRODUCT USED FOR UNKNOWN INDICATION
     Dosage: 20 MG, QD (1?0?0?0)
     Route: 048
  5. OLFEN [Concomitant]
     Indication: PRODUCT USED FOR UNKNOWN INDICATION
     Dosage: 75 MG
     Route: 065
     Dates: end: 20201120

REACTIONS (1)
  - Lower gastrointestinal haemorrhage [Recovered/Resolved]

NARRATIVE: CASE EVENT DATE: 20201120
